FAERS Safety Report 7570975-0 (Version None)
Quarter: 2011Q2

REPORT INFORMATION
  Report Type: 
  Country: None (occurrence: None)
  Receive Date: 20110624
  Receipt Date: 20110606
  Transmission Date: 20111010
  Serious: Yes (Hospitalization)
  Sender: FDA-Public Use
  Company Number: US-SHIRE-SPV1-2011-00783

PATIENT
  Sex: Female
  Weight: 23.583 kg

DRUGS (9)
  1. VYVANSE [Suspect]
     Indication: OPPOSITIONAL DEFIANT DISORDER
     Dosage: 20 MG, 1X/DAY:QD
     Route: 048
     Dates: start: 20091105, end: 20100204
  2. INTUNIV [Suspect]
     Indication: OPPOSITIONAL DEFIANT DISORDER
     Dosage: 3MG, 1X/DAY:QD
     Route: 048
     Dates: start: 20110430, end: 20110503
  3. CLONIDINE [Concomitant]
     Indication: PRODUCT USED FOR UNKNOWN INDICATION
     Dosage: 0.1 MG, 1X/DAY:QD
     Route: 065
     Dates: start: 20091003, end: 20091201
  4. FLOVENT [Concomitant]
     Indication: ASTHMA
     Dosage: UNK UNK, 2X/DAY:BID (1 PUFF)
     Route: 055
  5. VYVANSE [Suspect]
     Indication: ATTENTION DEFICIT/HYPERACTIVITY DISORDER
     Dosage: 30 MG, 1X/DAY:QD
     Route: 048
     Dates: start: 20100205, end: 20110503
  6. SINGULAIR [Concomitant]
     Indication: ASTHMA
     Dosage: 10 MG, 1X/DAY:QD
     Route: 048
  7. MELATONIN [Concomitant]
     Indication: ATTENTION DEFICIT/HYPERACTIVITY DISORDER
     Dosage: 1 MG, UNKNOWN
     Route: 048
  8. INTUNIV [Suspect]
     Indication: ATTENTION DEFICIT/HYPERACTIVITY DISORDER
     Dosage: 2 MG, 1X/DAY:QD
     Route: 048
     Dates: start: 20110421, end: 20110428
  9. CLONIDINE [Concomitant]
     Dosage: 0.1 MG, 1X/DAY:QD
     Route: 065
     Dates: start: 20100501, end: 20110406

REACTIONS (5)
  - DIZZINESS [None]
  - HEAD INJURY [None]
  - SYNCOPE [None]
  - CONVULSION [None]
  - SEDATION [None]
